FAERS Safety Report 9059371 (Version 2)
Quarter: 2013Q1

REPORT INFORMATION
  Report Type: Spontaneous
  Country: US (occurrence: US)
  Receive Date: 20130211
  Receipt Date: 20130221
  Transmission Date: 20140127
  Serious: Yes (Other)
  Sender: FDA-Public Use
  Company Number: CHPA2013US002696

PATIENT
  Age: 73 Year
  Sex: Female

DRUGS (4)
  1. PREVACID 24HR 15MG [Suspect]
     Indication: GASTROOESOPHAGEAL REFLUX DISEASE
     Dosage: 15 MG, QD
     Route: 048
  2. ROLAIDS [Concomitant]
  3. RESTASIS [Concomitant]
     Indication: DRY EYE
  4. ACETYLSALICYLIC ACID [Concomitant]
     Dosage: UNK, QD
     Route: 048

REACTIONS (4)
  - Hypertension [Recovered/Resolved]
  - Disease recurrence [Recovered/Resolved]
  - Therapeutic response unexpected [Unknown]
  - Off label use [Unknown]
